FAERS Safety Report 21668181 (Version 1)
Quarter: 2022Q4

REPORT INFORMATION
  Report Type: Spontaneous
  Country: NL (occurrence: NL)
  Receive Date: 20221201
  Receipt Date: 20221201
  Transmission Date: 20230112
  Serious: Yes (Hospitalization)
  Sender: FDA-Public Use
  Company Number: None

PATIENT
  Sex: Female
  Weight: 80.4 kg

DRUGS (3)
  1. VALACYCLOVIR HYDROCHLORIDE [Suspect]
     Active Substance: VALACYCLOVIR HYDROCHLORIDE
     Indication: Herpes zoster
     Dosage: 1000 MILLIGRAM DAILY; 3 X PER DAY 2 PIECES, STRENGTH :  500MG / BRAND NAME NOT SPECIFIED, THERAPY EN
     Route: 065
     Dates: start: 20220921
  2. HYRIMOZ [Concomitant]
     Active Substance: ADALIMUMAB-ADAZ
     Indication: Product used for unknown indication
     Dosage: INJECTION FLUID 50 MG/ML (MILLIGRAM PER MILLILITER), INJVLST 50MG/ML / HYRIMOZ 40MG INJVLST 50MG/ML
  3. AZATHIOPRINE [Concomitant]
     Active Substance: AZATHIOPRINE
     Indication: Product used for unknown indication
     Dosage: 50 MG (MILLIGRAM), STRENGTH : 50MG / BRAND NAME NOT SPECIFIED THERAPY START DATE : ASKU , THERAPY EN

REACTIONS (1)
  - Drug reaction with eosinophilia and systemic symptoms [Recovered/Resolved]
